FAERS Safety Report 25537488 (Version 1)
Quarter: 2025Q3

REPORT INFORMATION
  Report Type: Report from Study
  Country: US (occurrence: US)
  Receive Date: 20250710
  Receipt Date: 20250710
  Transmission Date: 20251020
  Serious: Yes (Other)
  Sender: ABBVIE
  Company Number: US-ABBVIE-6362069

PATIENT
  Age: 76 Year
  Sex: Male

DRUGS (1)
  1. HUMIRA [Suspect]
     Active Substance: ADALIMUMAB
     Indication: Crohn^s disease
     Route: 058
     Dates: start: 20140821

REACTIONS (5)
  - Urinary cystectomy [Unknown]
  - Lymphadenectomy [Unknown]
  - Prostatectomy [Unknown]
  - Blood urine present [Unknown]
  - Malaise [Unknown]

NARRATIVE: CASE EVENT DATE: 20250620
